FAERS Safety Report 16674253 (Version 1)
Quarter: 2019Q3

REPORT INFORMATION
  Report Type: Spontaneous
  Country: US (occurrence: US)
  Receive Date: 20190806
  Receipt Date: 20190806
  Transmission Date: 20191004
  Serious: No
  Sender: FDA-Public Use
  Company Number: US-BAUSCH-BL-2019-021536

PATIENT
  Age: 76 Year
  Sex: Female

DRUGS (5)
  1. DILTIAZEM HCL EXTENDED RELEASE TABLETS [Suspect]
     Active Substance: DILTIAZEM HYDROCHLORIDE
     Dosage: TOOK 1 TABLET
     Route: 048
     Dates: start: 20190722
  2. DILTIAZEM HCL EXTENDED RELEASE TABLETS [Suspect]
     Active Substance: DILTIAZEM HYDROCHLORIDE
     Indication: ATRIAL FIBRILLATION
     Route: 048
     Dates: start: 20190718
  3. DILTIAZEM HCL EXTENDED-RELEASE CAPSULES [Suspect]
     Active Substance: DILTIAZEM HYDROCHLORIDE
     Indication: PRODUCT USE IN UNAPPROVED INDICATION
     Dosage: TOOK 1 CAPSULE
     Route: 048
     Dates: start: 20190722
  4. DILTIAZEM HCL EXTENDED RELEASE TABLETS [Suspect]
     Active Substance: DILTIAZEM HYDROCHLORIDE
     Indication: PRODUCT USE IN UNAPPROVED INDICATION
     Dosage: TOOK 2 TABLETS
     Route: 048
     Dates: start: 201907
  5. DILTIAZEM HCL EXTENDED-RELEASE CAPSULES [Suspect]
     Active Substance: DILTIAZEM HYDROCHLORIDE
     Indication: ATRIAL FIBRILLATION
     Dosage: TOOK 3 CAPSULES
     Route: 048
     Dates: start: 201907

REACTIONS (4)
  - Product commingling [Unknown]
  - Product administration error [Unknown]
  - Vision blurred [Recovered/Resolved]
  - Product use in unapproved indication [Unknown]

NARRATIVE: CASE EVENT DATE: 201907
